FAERS Safety Report 24524749 (Version 4)
Quarter: 2025Q3

REPORT INFORMATION
  Report Type: Spontaneous
  Country: JP (occurrence: JP)
  Receive Date: 20241019
  Receipt Date: 20250701
  Transmission Date: 20251021
  Serious: Yes (Other)
  Sender: AMGEN
  Company Number: JP-AMGEN-JPNSP2024168444

PATIENT
  Age: 8 Decade
  Sex: Female

DRUGS (8)
  1. EVENITY [Suspect]
     Active Substance: ROMOSOZUMAB-AQQG
     Indication: Osteoporosis
     Route: 058
     Dates: start: 202110
  2. EVENITY [Suspect]
     Active Substance: ROMOSOZUMAB-AQQG
     Route: 058
     Dates: start: 20240822
  3. BONVIVA [Concomitant]
     Active Substance: IBANDRONATE SODIUM
     Route: 065
     Dates: start: 202210
  4. JARDIANCE [Concomitant]
     Active Substance: EMPAGLIFLOZIN
     Route: 065
  5. CARVEDILOL [Concomitant]
     Active Substance: CARVEDILOL
     Route: 065
  6. IRBESARTAN [Concomitant]
     Active Substance: IRBESARTAN
     Route: 065
  7. AZOSEMIDE [Concomitant]
     Active Substance: AZOSEMIDE
     Route: 065
  8. RHEUMATREX [Concomitant]
     Active Substance: METHOTREXATE SODIUM
     Route: 065

REACTIONS (1)
  - Femur fracture [Recovering/Resolving]

NARRATIVE: CASE EVENT DATE: 20240810
